FAERS Safety Report 10302088 (Version 2)
Quarter: 2015Q2

REPORT INFORMATION
  Report Type: Spontaneous
  Country: PL (occurrence: None)
  Receive Date: 20140709
  Receipt Date: 20150417
  Transmission Date: 20150821
  Serious: Yes (Hospitalization, Other)
  Sender: FDA-Public Use
  Company Number: 2014JUB00010

PATIENT
  Age: 60 Year
  Sex: Female

DRUGS (1)
  1. OLANZAPINE (OLANZAPINE) UNKNOWN [Suspect]
     Active Substance: OLANZAPINE
     Route: 030

REACTIONS (6)
  - Post-injection delirium sedation syndrome [None]
  - Asthenia [None]
  - Loss of consciousness [None]
  - Upper airway obstruction [None]
  - Drug level increased [None]
  - Toxicity to various agents [None]
